FAERS Safety Report 6066163-X (Version None)
Quarter: 2009Q1

REPORT INFORMATION
  Report Type: 
  Country: None (occurrence: None)
  Receive Date: 20090205
  Receipt Date: 20090122
  Transmission Date: 20090719
  Serious: Yes (Other)
  Sender: FDA-Public Use
  Company Number: PHHY2009CA02659

PATIENT

DRUGS (3)
  1. DIOVAN [Suspect]
     Indication: HYPERTENSION
     Route: 048
  2. BETA BLOCKING AGENTS [Concomitant]
     Dosage: UNK
  3. ACE INHIBITOR NOS [Concomitant]
     Dosage: UNK

REACTIONS (2)
  - ANGINA PECTORIS [None]
  - CARDIAC STRESS TEST [None]
